FAERS Safety Report 25467721 (Version 2)
Quarter: 2025Q2

REPORT INFORMATION
  Report Type: Spontaneous
  Country: SE (occurrence: SE)
  Receive Date: 20250623
  Receipt Date: 20250630
  Transmission Date: 20250717
  Serious: Yes (Life-Threatening, Hospitalization)
  Sender: MYLAN
  Company Number: SE-MYLANLABS-2025M1052504

PATIENT
  Sex: Female
  Weight: 4.9 kg

DRUGS (6)
  1. SILDENAFIL [Suspect]
     Active Substance: SILDENAFIL
     Indication: Pulmonary hypertension
     Dosage: 2 MILLIGRAM/KILOGRAM, QD, TARGET DOSE
  2. SILDENAFIL [Suspect]
     Active Substance: SILDENAFIL
     Dosage: 1.9 MILLIGRAM/KILOGRAM, QD
  3. SODIUM NITROPRUSSIDE [Suspect]
     Active Substance: SODIUM NITROPRUSSIDE
     Indication: Pulmonary hypertension
  4. MILRINONE [Suspect]
     Active Substance: MILRINONE
     Indication: Pulmonary hypertension
  5. NITRIC OXIDE [Suspect]
     Active Substance: NITRIC OXIDE
     Indication: Pulmonary hypertension
  6. ILOPROST [Suspect]
     Active Substance: ILOPROST
     Indication: Pulmonary hypertension

REACTIONS (2)
  - Drug ineffective [Unknown]
  - Off label use [Unknown]
